FAERS Safety Report 9289475 (Version 1)
Quarter: 2013Q2

REPORT INFORMATION
  Report Type: Spontaneous
  Country: US (occurrence: US)
  Receive Date: 20130514
  Receipt Date: 20130514
  Transmission Date: 20140414
  Serious: Yes (Other)
  Sender: FDA-Public Use
  Company Number: US-SANOFI-AVENTIS-2013SA047959

PATIENT
  Age: 58 Year
  Sex: Female

DRUGS (4)
  1. LOVENOX [Suspect]
     Indication: ANTIPHOSPHOLIPID SYNDROME
     Route: 065
  2. LOVENOX [Suspect]
     Indication: ANTIPHOSPHOLIPID SYNDROME
     Route: 065
  3. LOVENOX [Suspect]
     Indication: ANTIPHOSPHOLIPID SYNDROME
     Route: 065
  4. LOVENOX [Suspect]
     Indication: ANTIPHOSPHOLIPID SYNDROME
     Route: 065

REACTIONS (6)
  - Migraine [Not Recovered/Not Resolved]
  - Musculoskeletal stiffness [Not Recovered/Not Resolved]
  - Vomiting [Unknown]
  - Nausea [Not Recovered/Not Resolved]
  - Malaise [Not Recovered/Not Resolved]
  - Therapeutic response decreased [Unknown]
